FAERS Safety Report 7782697-1 (Version None)
Quarter: 2011Q3

REPORT INFORMATION
  Report Type: 
  Country: None (occurrence: None)
  Receive Date: 20110928
  Receipt Date: 20110915
  Transmission Date: 20111222
  Serious: Yes (Other)
  Sender: FDA-Public Use
  Company Number: US-RANBAXY-2011RR-48440

PATIENT
  Sex: Male

DRUGS (45)
  1. LEVAQUIN [Suspect]
     Dosage: 750 MG, UNK
     Route: 048
     Dates: start: 20090406
  2. PREDNISOLONE [Suspect]
     Dosage: UNK
     Route: 065
     Dates: start: 20091124
  3. PREDNISOLONE [Suspect]
     Dosage: UNK
     Route: 065
     Dates: start: 20100114
  4. PREDNISOLONE [Suspect]
     Dosage: UNK
     Route: 065
     Dates: start: 20100122
  5. PREDNISOLONE [Suspect]
     Dosage: UNK
     Route: 065
     Dates: start: 20110118
  6. CIPROFLOXACIN [Suspect]
     Indication: PROSTATITIS
     Dosage: UNK
     Route: 065
     Dates: start: 20051206, end: 20051220
  7. CIPROFLOXACIN [Suspect]
     Dosage: UNK
     Route: 065
     Dates: start: 20060602
  8. LEVAQUIN [Suspect]
     Indication: BRONCHITIS
     Dosage: 750 MG, UNK
     Route: 048
     Dates: start: 20021009
  9. LEVAQUIN [Suspect]
     Dosage: 750 MG, UNK
     Route: 048
     Dates: start: 20081201
  10. LEVAQUIN [Suspect]
     Dosage: 750 MG, UNK
     Route: 048
     Dates: start: 20060227
  11. LEVAQUIN [Suspect]
     Dosage: 750 MG, UNK
     Route: 048
     Dates: start: 20061012
  12. LEVAQUIN [Suspect]
     Dosage: 750 MG, UNK
     Route: 048
     Dates: start: 20090429
  13. LEVAQUIN [Suspect]
     Dosage: 750 MG, UNK
     Route: 048
     Dates: start: 20100223
  14. PREDNISOLONE [Suspect]
     Indication: BRONCHITIS
     Dosage: UNK
     Route: 065
     Dates: start: 20010510
  15. PREDNISOLONE [Suspect]
     Dosage: UNK
     Route: 065
     Dates: start: 20110622
  16. AVELOX [Suspect]
     Indication: BRONCHITIS
     Dosage: UNK
     Route: 065
     Dates: start: 20040513
  17. AVELOX [Suspect]
     Dosage: UNK
     Route: 065
     Dates: start: 20070425
  18. AVELOX [Suspect]
     Dosage: UNK
     Route: 065
     Dates: start: 20090928
  19. AVELOX [Suspect]
     Dosage: UNK
     Route: 065
     Dates: start: 20091021
  20. AVELOX [Suspect]
     Dosage: UNK
     Route: 065
     Dates: start: 20110103
  21. LEVAQUIN [Suspect]
     Dosage: 750 MG, UNK
     Route: 048
     Dates: start: 20100219
  22. PREDNISOLONE [Suspect]
     Dosage: UNK
     Route: 065
     Dates: start: 20050304
  23. LEVAQUIN [Suspect]
     Dosage: 750 MG, UNK
     Route: 048
     Dates: start: 20061116
  24. PREDNISOLONE [Suspect]
     Dosage: UNK
     Route: 065
     Dates: start: 20090928
  25. CIPROFLOXACIN [Suspect]
     Indication: DIVERTICULITIS
     Dosage: UNK
     Route: 065
     Dates: start: 20060516
  26. CIPROFLOXACIN [Suspect]
     Dosage: UNK
     Route: 065
     Dates: start: 20100501
  27. LEVAQUIN [Suspect]
     Dosage: 750 MG, UNK
     Route: 048
     Dates: start: 20061127
  28. LEVAQUIN [Suspect]
     Dosage: 750 MG, UNK
     Route: 048
     Dates: start: 20050721
  29. PREDNISOLONE [Suspect]
     Indication: SINUSITIS
     Dosage: UNK
     Route: 065
     Dates: start: 20041013
  30. PREDNISOLONE [Suspect]
     Indication: COUGH
     Dosage: UNK
     Route: 065
     Dates: start: 20041209
  31. PREDNISOLONE [Suspect]
     Indication: CHRONIC OBSTRUCTIVE PULMONARY DISEASE
     Dosage: UNK
     Route: 065
     Dates: start: 20050221
  32. LEVAQUIN [Suspect]
     Dosage: 750 MG, UNK
     Route: 048
     Dates: start: 20061013
  33. LEVAQUIN [Suspect]
     Dosage: 750 MG, UNK
     Route: 048
     Dates: start: 20100219
  34. LEVAQUIN [Suspect]
     Dosage: 500 MG, UNK
     Route: 048
     Dates: start: 20050725
  35. LEVAQUIN [Suspect]
     Dosage: 500 MG, UNK
     Route: 048
     Dates: start: 20080116
  36. LEVAQUIN [Suspect]
     Dosage: 750 MG, UNK
     Route: 048
     Dates: start: 20061120
  37. PREDNISOLONE [Suspect]
     Dosage: UNK
     Route: 065
     Dates: start: 20090723
  38. CIPROFLOXACIN [Suspect]
     Dosage: UNK
     Route: 065
     Dates: start: 20100108
  39. LEVAQUIN [Suspect]
     Dosage: 750 MG, UNK
     Route: 048
     Dates: start: 20031226
  40. LEVAQUIN [Suspect]
     Dosage: 750 MG, UNK
     Route: 048
     Dates: start: 20070208
  41. CIPROFLOXACIN [Suspect]
     Indication: BRONCHITIS
     Dosage: UNK
     Route: 065
     Dates: start: 20020808
  42. CIPROFLOXACIN [Suspect]
     Dosage: UNK
     Route: 065
     Dates: start: 20100216
  43. LEVAQUIN [Suspect]
     Dosage: 750 MG, UNK
     Route: 048
     Dates: start: 20060227
  44. LEVAQUIN [Suspect]
     Dosage: 750 MG, UNK
     Route: 048
     Dates: start: 20090106
  45. PREDNISOLONE [Suspect]
     Dosage: UNK
     Route: 065
     Dates: start: 20110511

REACTIONS (4)
  - TENDON RUPTURE [None]
  - ROTATOR CUFF SYNDROME [None]
  - MOVEMENT DISORDER [None]
  - LIGAMENT RUPTURE [None]
